FAERS Safety Report 5114408-2 (Version None)
Quarter: 2006Q3

REPORT INFORMATION
  Report Type: 
  Country: None (occurrence: None)
  Receive Date: 20060731
  Receipt Date: 20060605
  Transmission Date: 20061208
  Serious: No
  Sender: FDA-Public Use
  Company Number: 2006PV015018

PATIENT
  Age: 65 Year
  Sex: Female
  Weight: 81.6475 kg

DRUGS (9)
  1. BYETTA [Suspect]
     Indication: DIABETES MELLITUS NON-INSULIN-DEPENDENT
     Dosage: 5 MCG;BID;SC
     Route: 058
     Dates: start: 20060530, end: 20060612
  2. METFORMIN [Concomitant]
  3. PRANDIN [Concomitant]
  4. AVANDAMET [Concomitant]
  5. LANTUS [Concomitant]
  6. KETOCONAZOLE [Concomitant]
  7. AVANDIA [Concomitant]
  8. PRANDIN [Concomitant]
  9. TRICOR [Concomitant]

REACTIONS (12)
  - ABDOMINAL DISTENSION [None]
  - ABDOMINAL PAIN LOWER [None]
  - ASCITES [None]
  - BLOOD GLUCOSE DECREASED [None]
  - BLOOD GLUCOSE INCREASED [None]
  - DYSPNOEA [None]
  - EARLY SATIETY [None]
  - ERUCTATION [None]
  - FATIGUE [None]
  - GASTROOESOPHAGEAL REFLUX DISEASE [None]
  - OVARIAN CYST [None]
  - WEIGHT INCREASED [None]
